FAERS Safety Report 9776048 (Version 1)
Quarter: 2013Q4

REPORT INFORMATION
  Report Type: Spontaneous
  Country: GR (occurrence: None)
  Receive Date: 20131219
  Receipt Date: 20131219
  Transmission Date: 20140711
  Serious: Yes (Other)
  Sender: FDA-Public Use
  Company Number: COL_14835_2013

PATIENT
  Age: 51 Year
  Sex: Female

DRUGS (1)
  1. DURAPHAT [Suspect]
     Indication: PRODUCT USED FOR UNKNOWN INDICATION
     Dosage: (NI/NI/ORAL)
     Route: 048

REACTIONS (1)
  - Anaphylactic shock [None]
